FAERS Safety Report 23310107 (Version 1)
Quarter: 2023Q4

REPORT INFORMATION
  Report Type: Spontaneous
  Country: US (occurrence: None)
  Receive Date: 20231218
  Receipt Date: 20231218
  Transmission Date: 20240110
  Serious: Yes (Hospitalization)
  Sender: FDA-Public Use
  Company Number: None

PATIENT
  Sex: Female

DRUGS (4)
  1. BOSENTAN [Suspect]
     Active Substance: BOSENTAN
     Indication: Pulmonary arterial hypertension
     Dosage: FREQUENCY : TWICE A DAY;?
     Route: 048
     Dates: start: 202301
  2. SELEXIPAG [Suspect]
     Active Substance: SELEXIPAG
  3. REMODULIN [Suspect]
     Active Substance: TREPROSTINIL
  4. ADEMPAS [Concomitant]
     Active Substance: RIOCIGUAT

REACTIONS (1)
  - Hospitalisation [None]
